FAERS Safety Report 23065250 (Version 2)
Quarter: 2023Q4

REPORT INFORMATION
  Report Type: Spontaneous
  Country: JP (occurrence: JP)
  Receive Date: 20231013
  Receipt Date: 20231106
  Transmission Date: 20240109
  Serious: Yes (Other)
  Sender: FDA-Public Use
  Company Number: JP-BRISTOL-MYERS SQUIBB COMPANY-2023-112677

PATIENT

DRUGS (1)
  1. ORENCIA [Suspect]
     Active Substance: ABATACEPT
     Indication: Rheumatoid arthritis
     Route: 058

REACTIONS (5)
  - Injection site haemorrhage [Unknown]
  - Device safety feature issue [Unknown]
  - Incorrect dose administered [Unknown]
  - Device operational issue [Unknown]
  - Needle issue [Unknown]

NARRATIVE: CASE EVENT DATE: 20231004
